FAERS Safety Report 6302904-1 (Version None)
Quarter: 2009Q3

REPORT INFORMATION
  Report Type: 
  Country: None (occurrence: None)
  Receive Date: 20090810
  Receipt Date: 20090728
  Transmission Date: 20100115
  Serious: Yes (Hospitalization)
  Sender: FDA-Public Use
  Company Number: IN-ELI_LILLY_AND_COMPANY-IN200907006391

PATIENT
  Sex: Female

DRUGS (4)
  1. HUMULIN R [Suspect]
     Indication: BLOOD GLUCOSE FLUCTUATION
     Dosage: 60 IU, UNK
     Route: 058
     Dates: start: 20090701, end: 20090701
  2. HUMULIN R [Suspect]
     Dosage: 40 IU, UNK
     Route: 058
     Dates: start: 20090701, end: 20090701
  3. ACTRAPID HUMAN [Concomitant]
     Indication: BLOOD GLUCOSE INCREASED
     Dosage: 60 IU, UNK
     Dates: start: 20090701, end: 20090701
  4. ACTRAPID HUMAN [Concomitant]
     Dosage: 6 IU, UNK
     Dates: start: 20090701

REACTIONS (3)
  - BLOOD GLUCOSE FLUCTUATION [None]
  - DIABETES MELLITUS INADEQUATE CONTROL [None]
  - DRUG INEFFECTIVE [None]
